FAERS Safety Report 5283996-8 (Version None)
Quarter: 2007Q1

REPORT INFORMATION
  Report Type: 
  Country: None (occurrence: None)
  Receive Date: 20070327
  Receipt Date: 20070319
  Transmission Date: 20070707
  Serious: Yes (Hospitalization, Other)
  Sender: FDA-Public Use
  Company Number: 430095K06USA

PATIENT
  Age: 39 Year
  Sex: Female

DRUGS (3)
  1. NOVANTRONE [Suspect]
     Indication: MULTIPLE SCLEROSIS
     Dosage: ONCE, INTRAVENOUS
     Route: 042
     Dates: start: 20040311, end: 20040311
  2. MULTIVITAMIN WITH FOLIC ACID (MULTIVITAMIN AND MINERAL SUPPLEMENT) [Concomitant]
  3. FOLATE (FOLATE SODIUM) [Concomitant]

REACTIONS (4)
  - MITRAL VALVE PROLAPSE [None]
  - NON-CARDIAC CHEST PAIN [None]
  - OESOPHAGEAL SPASM [None]
  - SECONDARY PROGRESSIVE MULTIPLE SCLEROSIS [None]
